FAERS Safety Report 7651721-9 (Version None)
Quarter: 2011Q3

REPORT INFORMATION
  Report Type: 
  Country: None (occurrence: None)
  Receive Date: 20110802
  Receipt Date: 20110729
  Transmission Date: 20111222
  Serious: Yes (Life-Threatening)
  Sender: FDA-Public Use
  Company Number: US-B.I. PHARMACEUTICALS,INC./RIDGEFIELD-2010-BP-13614BP

PATIENT
  Sex: Male

DRUGS (19)
  1. LUPRON [Concomitant]
     Indication: PROSTATE CANCER
     Dates: start: 19930101
  2. DARVOCET-N 50 [Concomitant]
     Indication: ARTHRITIS
  3. XANAX [Concomitant]
     Indication: ANXIETY
     Route: 048
  4. M.V.I. [Concomitant]
  5. ALPRAZOLAM [Concomitant]
     Indication: CARDIAC DISORDER
     Dosage: 0.5 MG
     Route: 048
     Dates: start: 20050101
  6. AMBIEN [Concomitant]
     Indication: INSOMNIA
     Route: 048
  7. PERCOCET [Concomitant]
     Indication: ARTHRALGIA
     Route: 048
  8. MAGNESIUM OXIDE [Concomitant]
     Dosage: 64 MG
     Route: 048
     Dates: start: 20060101
  9. PROSTON [Concomitant]
     Route: 048
     Dates: start: 20050101
  10. LISINOPRIL [Concomitant]
     Indication: HYPERTENSION
     Dosage: 60 MG
     Route: 048
     Dates: start: 19600101
  11. PRADAXA [Suspect]
     Indication: ATRIAL FIBRILLATION
     Dosage: 300 MG
     Route: 048
     Dates: start: 20101115, end: 20110101
  12. POTASSIUM [Concomitant]
  13. PRADAXA [Suspect]
     Dosage: 300 MG
     Route: 048
     Dates: start: 20110101
  14. LIPITOR [Concomitant]
     Indication: BLOOD CHOLESTEROL INCREASED
     Dosage: 80 MG
     Route: 048
  15. ASPIRIN [Concomitant]
     Indication: CARDIAC DISORDER
     Route: 048
     Dates: start: 19600101
  16. CASODEX [Concomitant]
     Indication: PROSTATE CANCER
     Dosage: 50 MG
     Route: 048
     Dates: start: 19930101
  17. VIT C [Concomitant]
  18. ATENOLOL [Concomitant]
     Indication: ATRIAL FIBRILLATION
     Dosage: 50 MG
     Route: 048
  19. FOSAMAX [Concomitant]
     Indication: OSTEOPOROSIS
     Route: 048

REACTIONS (10)
  - FAECES DISCOLOURED [None]
  - RENAL PAIN [None]
  - NAUSEA [None]
  - RED BLOOD CELLS URINE POSITIVE [None]
  - PROSTATE CANCER [None]
  - BLOOD URINE PRESENT [None]
  - ABDOMINAL DISCOMFORT [None]
  - ASTHENIA [None]
  - PROSTATIC SPECIFIC ANTIGEN INCREASED [None]
  - SOMNOLENCE [None]
